FAERS Safety Report 7091747-X (Version None)
Quarter: 2010Q4

REPORT INFORMATION
  Report Type: 
  Country: None (occurrence: None)
  Receive Date: 20101109
  Receipt Date: 20101025
  Transmission Date: 20110411
  Serious: Yes (Other)
  Sender: FDA-Public Use
  Company Number: GB-RB-014511-10

PATIENT
  Age: 84 Year
  Sex: Male

DRUGS (3)
  1. MUCINEX DM [Suspect]
     Indication: COUGH
     Route: 048
  2. TOPRAL [Concomitant]
     Indication: BLOOD PRESSURE
  3. PLAVIX [Concomitant]
     Indication: BLOOD CHOLESTEROL

REACTIONS (2)
  - BLOOD PRESSURE INCREASED [None]
  - DRUG INEFFECTIVE [None]
